FAERS Safety Report 9280198 (Version 2)
Quarter: 2013Q2

REPORT INFORMATION
  Report Type: Report from Study
  Country: CA (occurrence: CA)
  Receive Date: 20130509
  Receipt Date: 20130612
  Transmission Date: 20140414
  Serious: Yes (Other)
  Sender: FDA-Public Use
  Company Number: CA-ROCHE-1131494

PATIENT
  Sex: Female
  Weight: 54.4 kg

DRUGS (9)
  1. AVASTIN [Suspect]
     Indication: GLIOBLASTOMA
     Route: 042
     Dates: start: 20120116, end: 20130418
  2. AVASTIN [Suspect]
     Route: 042
     Dates: start: 20120830
  3. AVASTIN [Suspect]
     Route: 042
     Dates: start: 20121026
  4. AVASTIN [Suspect]
     Route: 042
     Dates: start: 20121122, end: 20130418
  5. KEPPRA [Concomitant]
  6. LYRICA [Concomitant]
  7. PANTOLOC [Concomitant]
  8. SYNTHROID [Concomitant]
  9. ZOFRAN [Concomitant]

REACTIONS (4)
  - Disease progression [Unknown]
  - Fatigue [Not Recovered/Not Resolved]
  - Decreased appetite [Not Recovered/Not Resolved]
  - Cough [Unknown]
